FAERS Safety Report 12484342 (Version 1)
Quarter: 2016Q2

REPORT INFORMATION
  Report Type: Report from Study
  Country: US (occurrence: US)
  Receive Date: 20160621
  Receipt Date: 20160621
  Transmission Date: 20160815
  Serious: Yes (Other)
  Sender: FDA-Public Use
  Company Number: US-AMGEN-USASL2016078374

PATIENT
  Age: 52 Year
  Sex: Female

DRUGS (3)
  1. METHOTREXATE [Suspect]
     Active Substance: METHOTREXATE
     Indication: PRODUCT USED FOR UNKNOWN INDICATION
     Dosage: UNK
     Route: 065
  2. ENBREL [Suspect]
     Active Substance: ETANERCEPT
     Indication: PSORIATIC ARTHROPATHY
     Dosage: UNK
     Route: 065
  3. ENBREL [Suspect]
     Active Substance: ETANERCEPT
     Indication: PERIPHERAL SWELLING

REACTIONS (9)
  - Adverse event [Unknown]
  - Decreased immune responsiveness [Unknown]
  - Pharyngitis streptococcal [Unknown]
  - Blood magnesium decreased [Unknown]
  - Limb operation [Unknown]
  - Malaise [Unknown]
  - Headache [Unknown]
  - Asthenia [Unknown]
  - No therapeutic response [Unknown]

NARRATIVE: CASE EVENT DATE: 201512
